FAERS Safety Report 9312340 (Version 3)
Quarter: 2013Q2

REPORT INFORMATION
  Report Type: Spontaneous
  Country: JP (occurrence: JP)
  Receive Date: 20130528
  Receipt Date: 20130614
  Transmission Date: 20140414
  Serious: Yes (Life-Threatening, Hospitalization, Other)
  Sender: FDA-Public Use
  Company Number: JP-ASTRAZENECA-2013SE36520

PATIENT
  Age: 20518 Day
  Sex: Female
  Weight: 44 kg

DRUGS (11)
  1. NEXIUM [Suspect]
     Route: 048
     Dates: start: 201305, end: 20130513
  2. JZOLOFT [Suspect]
     Indication: BIPOLAR DISORDER
     Route: 048
     Dates: end: 20130513
  3. CYMBALTA [Suspect]
     Indication: BIPOLAR DISORDER
     Route: 048
     Dates: end: 20130513
  4. SOLANAX [Suspect]
     Indication: BIPOLAR DISORDER
     Route: 048
     Dates: end: 20130513
  5. GRANDAXIN [Suspect]
     Indication: BIPOLAR DISORDER
     Route: 048
     Dates: end: 20130513
  6. SAN^OSHASHINTO [Suspect]
     Indication: BIPOLAR DISORDER
     Route: 048
     Dates: end: 20130513
  7. AMLODIPINE OD [Suspect]
     Dosage: DOSE UNKNOWN
     Route: 048
     Dates: end: 20130513
  8. ATORVASTATIN [Suspect]
     Dosage: DOSE UNKNOWN
     Route: 048
     Dates: end: 20130513
  9. EPADEL S [Suspect]
     Dosage: DOSE UNKNOWN
     Route: 048
     Dates: end: 20130513
  10. VOLTAREN [Suspect]
     Route: 048
     Dates: end: 20130513
  11. LEVOTOMIN [Suspect]
     Indication: SCHIZOPHRENIA
     Route: 048
     Dates: end: 20130513

REACTIONS (5)
  - Hepatitis fulminant [Recovering/Resolving]
  - Disseminated intravascular coagulation [Recovered/Resolved]
  - Restlessness [Unknown]
  - Hallucination, auditory [Unknown]
  - Blood potassium increased [Unknown]
